FAERS Safety Report 7291177-1 (Version None)
Quarter: 2011Q1

REPORT INFORMATION
  Report Type: 
  Country: None (occurrence: None)
  Receive Date: 20110214
  Receipt Date: 20110208
  Transmission Date: 20110831
  Serious: Yes (Death)
  Sender: FDA-Public Use
  Company Number: JP-MERCK-1102USA01129

PATIENT
  Age: 85 Year
  Sex: Male

DRUGS (5)
  1. STROMECTOL [Suspect]
     Indication: ACARODERMATITIS
     Route: 048
     Dates: start: 20101008, end: 20101008
  2. EXCEGRAN [Concomitant]
     Indication: EPILEPSY
     Route: 048
  3. ARICEPT [Concomitant]
     Indication: EPILEPSY
     Route: 048
  4. EURAX [Concomitant]
     Indication: ACARODERMATITIS
     Route: 061
     Dates: start: 20101008
  5. DIOVAN [Concomitant]
     Indication: EPILEPSY
     Route: 048

REACTIONS (1)
  - CARDIO-RESPIRATORY ARREST [None]
